FAERS Safety Report 10281389 (Version 1)
Quarter: 2014Q3

REPORT INFORMATION
  Report Type: Spontaneous
  Country: US (occurrence: None)
  Receive Date: 20140702
  Receipt Date: 20140702
  Transmission Date: 20150326
  Serious: Yes (Other)
  Sender: FDA-Public Use
  Company Number: None

PATIENT
  Age: 50 Year
  Sex: Male
  Weight: 95.26 kg

DRUGS (2)
  1. CTX4 RINSE NOS [Suspect]
     Active Substance: SODIUM FLUORIDE
     Indication: DENTAL CARIES
     Dates: start: 20140610, end: 20140701
  2. CTX4 RINSE NOS [Suspect]
     Active Substance: SODIUM FLUORIDE
     Indication: PROPHYLAXIS
     Dates: start: 20140610, end: 20140701

REACTIONS (1)
  - Product label issue [None]

NARRATIVE: CASE EVENT DATE: 20140623
